FAERS Safety Report 6347028-2 (Version None)
Quarter: 2009Q3

REPORT INFORMATION
  Report Type: 
  Country: None (occurrence: None)
  Receive Date: 20090909
  Receipt Date: 20090909
  Transmission Date: 20100115
  Serious: No
  Sender: FDA-Public Use
  Company Number: None

PATIENT
  Age: 45 Year
  Sex: Female
  Weight: 49.8957 kg

DRUGS (2)
  1. ZICAM [Suspect]
     Indication: NASOPHARYNGITIS
     Dates: start: 20070615, end: 20081115
  2. ZICAM [Suspect]
     Indication: PROPHYLAXIS
     Dates: start: 20070615, end: 20081115

REACTIONS (2)
  - AGEUSIA [None]
  - HYPOSMIA [None]
